FAERS Safety Report 8251103-5 (Version None)
Quarter: 2012Q2

REPORT INFORMATION
  Report Type: 
  Country: None (occurrence: None)
  Receive Date: 20120402
  Receipt Date: 20120326
  Transmission Date: 20120825
  Serious: Yes (Other)
  Sender: FDA-Public Use
  Company Number: FR-PFIZER INC-2012076619

PATIENT
  Age: 84 Year
  Sex: Male

DRUGS (11)
  1. SPIRONOLACTONE [Concomitant]
  2. VANCOMYCIN [Concomitant]
     Indication: STAPHYLOCOCCAL INFECTION
     Dosage: UNK
     Dates: start: 20120101
  3. PRAZOSIN [Concomitant]
  4. SALICYLIC ACID [Concomitant]
  5. RIFADIN [Suspect]
     Indication: ANTIBIOTIC RESISTANT STAPHYLOCOCCUS TEST POSITIVE
     Dosage: 300 MG
     Route: 048
     Dates: start: 20120123
  6. OMEPRAZOLE [Concomitant]
  7. FLUINDIONE [Concomitant]
  8. ZYVOX [Suspect]
     Indication: ANTIBIOTIC RESISTANT STAPHYLOCOCCUS TEST POSITIVE
     Dosage: 600 MG, 2X/DAY
     Route: 048
     Dates: start: 20120123, end: 20120201
  9. FUROSEMIDE [Concomitant]
  10. ENOXAPARIN SODIUM [Concomitant]
  11. RUPATADINE [Concomitant]

REACTIONS (2)
  - RENAL FAILURE [None]
  - PARAESTHESIA [None]
